FAERS Safety Report 7232999-2 (Version None)
Quarter: 2011Q1

REPORT INFORMATION
  Report Type: 
  Country: None (occurrence: None)
  Receive Date: 20110119
  Receipt Date: 20110106
  Transmission Date: 20110831
  Serious: Yes (Hospitalization, Other)
  Sender: FDA-Public Use
  Company Number: US-ACTELION-A-NJ2010-43193

PATIENT

DRUGS (4)
  1. COUMADIN [Concomitant]
  2. BOSENTAN TABLET 125 MG US [Suspect]
     Indication: PULMONARY ARTERIAL HYPERTENSION
     Dosage: 125 MG, BID
     Route: 048
     Dates: start: 20100728
  3. EPOGEN [Concomitant]
  4. BOSENTAN TABLET 125 MG US [Suspect]
     Dosage: 62.5 MG, BID
     Route: 048
     Dates: start: 20100701, end: 20100727

REACTIONS (6)
  - TRANSFUSION [None]
  - LIGAMENT INJURY [None]
  - ANAEMIA [None]
  - FALL [None]
  - JOINT INJURY [None]
  - UPPER LIMB FRACTURE [None]
